FAERS Safety Report 13884956 (Version 1)
Quarter: 2017Q3

REPORT INFORMATION
  Report Type: Not Available
  Country: TW (occurrence: TW)
  Receive Date: 20170821
  Receipt Date: 20170821
  Transmission Date: 20171127
  Serious: Yes (Death)
  Sender: FDA-Public Use
  Company Number: TW-IDTAUSTRALIA-2017-TW-000012

PATIENT
  Age: 88 Year
  Sex: Female

DRUGS (2)
  1. ETODOLAC (NON-SPECIFIC) [Suspect]
     Active Substance: ETODOLAC
     Dosage: 200MG TWICE DAILY
  2. CHLORMEZANONE [Suspect]
     Active Substance: CHLORMEZANONE
     Dosage: 100MG TWICE DAILY

REACTIONS (3)
  - Multiple organ dysfunction syndrome [Fatal]
  - Death [Fatal]
  - Drug reaction with eosinophilia and systemic symptoms [Fatal]
